FAERS Safety Report 7028858-0 (Version None)
Quarter: 2010Q4

REPORT INFORMATION
  Report Type: 
  Country: None (occurrence: None)
  Receive Date: 20101005
  Receipt Date: 20100927
  Transmission Date: 20110411
  Serious: Yes (Hospitalization)
  Sender: FDA-Public Use
  Company Number: US-PURDUE-USA-2010-0047559

PATIENT
  Sex: Male

DRUGS (4)
  1. OXYCONTIN [Suspect]
     Dosage: 40 MG, UNK
     Dates: start: 20100901
  2. CAPTOPRIL [Concomitant]
     Indication: HYPERTENSION
  3. ALBUTEROL [Concomitant]
     Indication: ASTHMA
  4. HIV MEDICATIONS [Concomitant]
     Indication: HIV INFECTION

REACTIONS (10)
  - ABDOMINAL DISCOMFORT [None]
  - ASTHMA [None]
  - BACK PAIN [None]
  - BURNING SENSATION [None]
  - DIZZINESS [None]
  - DYSPNOEA [None]
  - PRURITUS [None]
  - RASH [None]
  - SCRATCH [None]
  - WRONG TECHNIQUE IN DRUG USAGE PROCESS [None]
